FAERS Safety Report 24640624 (Version 2)
Quarter: 2024Q4

REPORT INFORMATION
  Report Type: Spontaneous
  Country: US (occurrence: US)
  Receive Date: 20241120
  Receipt Date: 20241126
  Transmission Date: 20250114
  Serious: No
  Sender: ROCHE
  Company Number: US-ROCHE-10000134321

PATIENT
  Age: 37 Year
  Sex: Female

DRUGS (2)
  1. ACTEMRA [Suspect]
     Active Substance: TOCILIZUMAB
     Indication: Systemic scleroderma
     Route: 058
  2. ACTEMRA [Suspect]
     Active Substance: TOCILIZUMAB

REACTIONS (1)
  - COVID-19 [Unknown]
